FAERS Safety Report 4772660-7 (Version None)
Quarter: 2005Q3

REPORT INFORMATION
  Report Type: 
  Country: None (occurrence: None)
  Receive Date: 20050914
  Receipt Date: 20041112
  Transmission Date: 20060218
  Serious: Yes (Death, Other)
  Sender: FDA-Public Use
  Company Number: 163-20785-04110304

PATIENT
  Age: 55 Year
  Sex: Male

DRUGS (2)
  1. THALOMID [Suspect]
     Indication: MALIGNANT MELANOMA
     Dosage: SEE IMAGE, ORAL
     Route: 048
     Dates: start: 20040618, end: 20040711
  2. THALOMID [Suspect]
     Indication: MALIGNANT MELANOMA
     Dosage: SEE IMAGE, ORAL
     Route: 048
     Dates: start: 20040712, end: 20040809

REACTIONS (3)
  - DEATH [None]
  - DEEP VEIN THROMBOSIS [None]
  - DISEASE PROGRESSION [None]
